FAERS Safety Report 4791510-6 (Version None)
Quarter: 2005Q4

REPORT INFORMATION
  Report Type: 
  Country: None (occurrence: None)
  Receive Date: 20051007
  Receipt Date: 20041130
  Transmission Date: 20060501
  Serious: No
  Sender: FDA-Public Use
  Company Number: US-BRISTOL-MYERS SQUIBB COMPANY-12781456

PATIENT

DRUGS (3)
  1. AVAPRO [Suspect]
  2. PLAVIX [Suspect]
  3. ZOCOR [Suspect]

REACTIONS (2)
  - PAIN IN JAW [None]
  - TOOTHACHE [None]
